FAERS Safety Report 11719808 (Version 6)
Quarter: 2016Q1

REPORT INFORMATION
  Report Type: Report from Study
  Country: BR (occurrence: BR)
  Receive Date: 20151110
  Receipt Date: 20160314
  Transmission Date: 20160525
  Serious: Yes (Hospitalization, Other)
  Sender: FDA-Public Use
  Company Number: BR-ROCHE-1656690

PATIENT
  Age: 54 Year
  Sex: Male
  Weight: 85 kg

DRUGS (11)
  1. BAMIFIX [Concomitant]
     Active Substance: BAMIFYLLINE HYDROCHLORIDE
     Route: 065
  2. INVOKANA [Concomitant]
     Active Substance: CANAGLIFLOZIN
     Route: 065
     Dates: start: 201511
  3. XOLAIR [Suspect]
     Active Substance: OMALIZUMAB
     Route: 058
     Dates: start: 20151110
  4. INVOKANA [Concomitant]
     Active Substance: CANAGLIFLOZIN
  5. MONTELUKAST [Concomitant]
     Active Substance: MONTELUKAST SODIUM
  6. XOLAIR [Suspect]
     Active Substance: OMALIZUMAB
     Route: 058
     Dates: start: 20151025
  7. XOLAIR [Suspect]
     Active Substance: OMALIZUMAB
     Route: 058
     Dates: start: 20151012
  8. ROXITHROMYCIN [Concomitant]
     Active Substance: ROXITHROMYCIN
  9. GLIFAGE [Concomitant]
     Active Substance: METFORMIN HYDROCHLORIDE
  10. XOLAIR [Suspect]
     Active Substance: OMALIZUMAB
     Indication: ASTHMA
     Route: 058
     Dates: start: 20151010
  11. SYMBICORT [Concomitant]
     Active Substance: BUDESONIDE\FORMOTEROL FUMARATE DIHYDRATE
     Route: 065
     Dates: start: 201512

REACTIONS (10)
  - Asthma [Unknown]
  - Cough [Not Recovered/Not Resolved]
  - Influenza [Unknown]
  - Incorrect dose administered [Unknown]
  - Feeling of body temperature change [Recovered/Resolved]
  - Productive cough [Unknown]
  - Bronchitis [Not Recovered/Not Resolved]
  - Influenza like illness [Recovering/Resolving]
  - Bronchitis chronic [Recovering/Resolving]
  - General physical condition abnormal [Recovered/Resolved]

NARRATIVE: CASE EVENT DATE: 20151012
